FAERS Safety Report 4885864-X (Version None)
Quarter: 2006Q1

REPORT INFORMATION
  Report Type: 
  Country: None (occurrence: None)
  Receive Date: 20060119
  Receipt Date: 20060104
  Transmission Date: 20060701
  Serious: Yes (Disabling)
  Sender: FDA-Public Use
  Company Number: 2006004453

PATIENT
  Age: 64 Year
  Sex: Male
  Weight: 99 kg

DRUGS (11)
  1. SILDENAFIL CITRATE [Suspect]
     Indication: ERECTILE DYSFUNCTION
     Dosage: ORAL
     Route: 048
     Dates: start: 20050726, end: 20051201
  2. METFORMIN HCL [Concomitant]
  3. ENALAPRIL MALEATE [Concomitant]
  4. CO-PROXAMOL (DEXTROPROPROPOXYPHENE HYDROCHLORIDE, PARACETAMOL) [Concomitant]
  5. SIMVASTATIN [Concomitant]
  6. ASPIRIN [Concomitant]
  7. SIMVASTATIN [Concomitant]
  8. FENOFIBRATE [Concomitant]
  9. INSULIN [Concomitant]
  10. ASACOL [Concomitant]
  11. FLUOXETINE [Concomitant]

REACTIONS (1)
  - OPTIC ISCHAEMIC NEUROPATHY [None]
